FAERS Safety Report 10057399 (Version 1)
Quarter: 2014Q2

REPORT INFORMATION
  Report Type: Spontaneous
  Country: JP (occurrence: JP)
  Receive Date: 20140403
  Receipt Date: 20140403
  Transmission Date: 20141212
  Serious: Yes (Hospitalization)
  Sender: FDA-Public Use
  Company Number: JP-KOWA-2014S1000377

PATIENT
  Age: 72 Year
  Sex: Male

DRUGS (9)
  1. LIVALO [Suspect]
     Indication: TYPE 2 DIABETES MELLITUS
     Route: 048
  2. LIVALO [Suspect]
     Indication: HYPERCHOLESTEROLAEMIA
     Route: 048
  3. ACTOS [Suspect]
     Indication: TYPE 2 DIABETES MELLITUS
     Route: 048
     Dates: start: 2009
  4. ACTOS [Suspect]
     Indication: TYPE 2 DIABETES MELLITUS
     Route: 048
     Dates: start: 201109, end: 20140202
  5. PIOGLITAZONE [Suspect]
     Route: 048
     Dates: end: 201109
  6. BASEN [Concomitant]
     Route: 048
     Dates: start: 200909, end: 20130909
  7. TENELIGLIPTIN [Concomitant]
     Route: 048
     Dates: start: 20130910
  8. FASTIC [Concomitant]
     Route: 048
     Dates: start: 200909, end: 20130909
  9. VESICARE [Concomitant]
     Route: 048
     Dates: start: 20130730, end: 20130801

REACTIONS (1)
  - Bladder cancer [Unknown]
